FAERS Safety Report 25518794 (Version 1)
Quarter: 2025Q3

REPORT INFORMATION
  Report Type: Spontaneous
  Country: US (occurrence: US)
  Receive Date: 20250704
  Receipt Date: 20250704
  Transmission Date: 20251021
  Serious: Yes (Other)
  Sender: ROCHE
  Company Number: US-ROCHE-10000323937

PATIENT
  Sex: Female

DRUGS (2)
  1. XOLAIR PFS [Suspect]
     Active Substance: OMALIZUMAB
     Indication: Asthma
     Dosage: 150MG/ML AND 75MG/0.5ML
     Route: 058
     Dates: start: 20240823
  2. XOLAIR PFS [Suspect]
     Active Substance: OMALIZUMAB
     Dosage: 150MG/ML AND 75MG/0.5ML
     Route: 058
     Dates: start: 20240823

REACTIONS (3)
  - Condition aggravated [Unknown]
  - Road traffic accident [Unknown]
  - Traumatic lung injury [Unknown]
